FAERS Safety Report 7422230-7 (Version None)
Quarter: 2011Q2

REPORT INFORMATION
  Report Type: 
  Country: None (occurrence: None)
  Receive Date: 20110418
  Receipt Date: 20110406
  Transmission Date: 20111010
  Serious: Yes (Other)
  Sender: FDA-Public Use
  Company Number: US-BAYER-201025026NA

PATIENT
  Age: 38 Year
  Sex: Female

DRUGS (13)
  1. MAGNEVIST [Suspect]
     Indication: NUCLEAR MAGNETIC RESONANCE IMAGING
  2. OPTIMARK [Suspect]
     Indication: NUCLEAR MAGNETIC RESONANCE IMAGING
  3. MULTIHANCE [Suspect]
     Indication: NUCLEAR MAGNETIC RESONANCE IMAGING
  4. PREDNISONE [Concomitant]
  5. TACROLIMUS [Concomitant]
  6. SYNTHROID [Concomitant]
  7. EPOGEN [Concomitant]
  8. GADOLINIUM IN UNSPECIFIED DRUG [Suspect]
     Dosage: 20 ML (DAILY DOSE), ,
     Dates: start: 20051026, end: 20051026
  9. PROHANCE [Suspect]
     Indication: NUCLEAR MAGNETIC RESONANCE IMAGING
  10. IRON [Concomitant]
  11. GADOLINIUM IN UNSPECIFIED DRUG [Suspect]
     Dates: start: 20010801, end: 20010801
  12. OMNISCAN [Suspect]
     Indication: NUCLEAR MAGNETIC RESONANCE IMAGING
  13. ANALGESICS [Concomitant]

REACTIONS (9)
  - SKIN INDURATION [None]
  - MUSCULAR WEAKNESS [None]
  - DEFORMITY [None]
  - PAIN [None]
  - GAIT DISTURBANCE [None]
  - DYSSTASIA [None]
  - NEPHROGENIC SYSTEMIC FIBROSIS [None]
  - ABASIA [None]
  - DYSPNOEA [None]
